FAERS Safety Report 8105762-8 (Version None)
Quarter: 2012Q1

REPORT INFORMATION
  Report Type: 
  Country: None (occurrence: None)
  Receive Date: 20120201
  Receipt Date: 20120123
  Transmission Date: 20120608
  Serious: Yes (Hospitalization)
  Sender: FDA-Public Use
  Company Number: FR-ASTRAZENECA-2012SE05502

PATIENT
  Age: 23 Year
  Sex: Female

DRUGS (13)
  1. ACUPAN [Concomitant]
  2. XYZAL [Suspect]
     Route: 048
     Dates: end: 20100625
  3. ROCURONIUM BROMIDE [Concomitant]
  4. ULTIVA [Concomitant]
  5. TIBERAL [Suspect]
     Dosage: DAILY
     Route: 042
     Dates: start: 20100622, end: 20100625
  6. CEFAMANDOLE SODIUM [Suspect]
     Route: 042
     Dates: end: 20100625
  7. MORPHINE [Concomitant]
  8. XYLOCAINE [Concomitant]
  9. NEXIUM [Suspect]
     Dosage: DAILY
     Route: 048
     Dates: end: 20100625
  10. DROPERIDOL [Concomitant]
  11. PROPOFOL [Concomitant]
  12. SPASFON [Concomitant]
  13. KETOPROFEN [Suspect]
     Route: 048
     Dates: end: 20100625

REACTIONS (3)
  - ERYTHEMA [None]
  - HEPATITIS CHOLESTATIC [None]
  - CYTOLYTIC HEPATITIS [None]
